FAERS Safety Report 6430979-8 (Version None)
Quarter: 2009Q4

REPORT INFORMATION
  Report Type: 
  Country: None (occurrence: None)
  Receive Date: 20091106
  Receipt Date: 20091028
  Transmission Date: 20100525
  Serious: Yes (Other)
  Sender: FDA-Public Use
  Company Number: JP-PFIZER INC-2009290803

PATIENT

DRUGS (5)
  1. NORVASC [Suspect]
     Dosage: UNK
     Route: 048
  2. LANSOPRAZOLE [Concomitant]
     Dosage: UNK
  3. PHENLASE-S [Concomitant]
     Dosage: UNK
  4. SEVEN EP [Concomitant]
  5. OMEPRAL [Concomitant]

REACTIONS (1)
  - CONVULSION [None]
